FAERS Safety Report 7982255-X (Version None)
Quarter: 2011Q4

REPORT INFORMATION
  Report Type: 
  Country: None (occurrence: None)
  Receive Date: 20111215
  Receipt Date: 20111215
  Transmission Date: 20120403
  Serious: No
  Sender: FDA-Public Use
  Company Number: None

PATIENT
  Age: 33 Year
  Sex: Female
  Weight: 72.574 kg

DRUGS (1)
  1. YASMIN [Suspect]

REACTIONS (2)
  - THROMBOSIS [None]
  - DRUG DOSE OMISSION [None]
